FAERS Safety Report 21161968 (Version 1)
Quarter: 2022Q3

REPORT INFORMATION
  Report Type: Spontaneous
  Country: US (occurrence: US)
  Receive Date: 20220802
  Receipt Date: 20220802
  Transmission Date: 20221026
  Serious: Yes (Hospitalization, Other)
  Sender: FDA-Public Use
  Company Number: US-AMGEN-USASP2022126940

PATIENT
  Age: 57 Year
  Sex: Male

DRUGS (2)
  1. INFLIXIMAB [Suspect]
     Active Substance: INFLIXIMAB
     Indication: Colitis ulcerative
     Route: 065
  2. MERCAPTOPURINE [Suspect]
     Active Substance: MERCAPTOPURINE
     Indication: Colitis ulcerative
     Route: 065

REACTIONS (7)
  - Hyponatraemia [Unknown]
  - Colitis ulcerative [Unknown]
  - Haemoglobin decreased [Unknown]
  - Respiratory failure [Recovering/Resolving]
  - Pulmonary alveolar haemorrhage [Unknown]
  - Pneumonia legionella [Unknown]
  - Antinuclear antibody positive [Unknown]
